FAERS Safety Report 4658503-0 (Version None)
Quarter: 2005Q2

REPORT INFORMATION
  Report Type: 
  Country: None (occurrence: None)
  Receive Date: 20050510
  Receipt Date: 20050510
  Transmission Date: 20051028
  Serious: Yes (Other)
  Sender: FDA-Public Use
  Company Number: None

PATIENT
  Sex: Female

DRUGS (1)
  1. HUMIRA [Suspect]
     Indication: RHEUMATOID ARTHRITIS
     Dosage: 40MG   QW    SUBCUTANEOUS
     Route: 058
     Dates: start: 20050407, end: 20050506

REACTIONS (3)
  - PRURITUS [None]
  - RASH [None]
  - SWELLING [None]
